FAERS Safety Report 17584897 (Version 1)
Quarter: 2020Q1

REPORT INFORMATION
  Report Type: Spontaneous
  Country: IE (occurrence: IE)
  Receive Date: 20200326
  Receipt Date: 20200326
  Transmission Date: 20200409
  Serious: Yes (Other)
  Sender: FDA-Public Use
  Company Number: IE-MYLANLABS-2020M1019505

PATIENT
  Age: 50 Year
  Sex: Male

DRUGS (4)
  1. DIAZEPAM. [Concomitant]
     Active Substance: DIAZEPAM
     Dosage: 5 MILLIGRAM, QD
     Route: 048
  2. CLOZARIL [Suspect]
     Active Substance: CLOZAPINE
     Indication: SCHIZOPHRENIA
     Dosage: 50 MG EVENING AND 25 MG MORNING
     Route: 048
     Dates: start: 20200213, end: 20200218
  3. OLANZAPINE. [Concomitant]
     Active Substance: OLANZAPINE
     Dosage: 15 MILLIGRAM, PM
     Route: 048
  4. HALOPERIDOL. [Concomitant]
     Active Substance: HALOPERIDOL
     Dosage: 5 MILLIGRAM, TDS
     Route: 048

REACTIONS (5)
  - Hypertension [Recovered/Resolved]
  - Rash pruritic [Recovered/Resolved]
  - Lip blister [Recovered/Resolved]
  - Rash [Recovered/Resolved]
  - Rash erythematous [Recovered/Resolved]

NARRATIVE: CASE EVENT DATE: 20200213
